FAERS Safety Report 22318513 (Version 1)
Quarter: 2023Q2

REPORT INFORMATION
  Report Type: Report from Study
  Country: US (occurrence: US)
  Receive Date: 20230515
  Receipt Date: 20230515
  Transmission Date: 20230721
  Serious: Yes (Other)
  Sender: FDA-Public Use
  Company Number: US-INSMED, INC.-2022-03542-US

PATIENT
  Age: 71 Year
  Sex: Female

DRUGS (2)
  1. ARIKAYCE [Suspect]
     Active Substance: AMIKACIN
     Indication: Mycobacterium avium complex infection
     Dosage: 590 MILLIGRAM, QD
     Route: 055
     Dates: start: 20221206, end: 20230110
  2. ARIKAYCE [Suspect]
     Active Substance: AMIKACIN
     Dosage: 590 MILLIGRAM, 3 DAYS A WEEK
     Route: 055
     Dates: start: 20230111, end: 202303

REACTIONS (26)
  - Dependence on oxygen therapy [Recovering/Resolving]
  - Pulmonary oedema [Recovered/Resolved]
  - Dyspnoea [Recovering/Resolving]
  - Secretion discharge [Recovering/Resolving]
  - Tongue discomfort [Recovering/Resolving]
  - Sputum abnormal [Recovering/Resolving]
  - Depressed mood [Recovered/Resolved]
  - COVID-19 [Recovered/Resolved]
  - Eye disorder [Unknown]
  - Drug intolerance [Recovering/Resolving]
  - Breath sounds abnormal [Recovered/Resolved]
  - Pain in extremity [Recovering/Resolving]
  - Sputum increased [Recovering/Resolving]
  - Retching [Recovering/Resolving]
  - Headache [Recovering/Resolving]
  - Productive cough [Recovering/Resolving]
  - Vomiting [Recovered/Resolved]
  - Dysphonia [Recovering/Resolving]
  - Nausea [Recovered/Resolved]
  - Asthenia [Recovered/Resolved]
  - Cough [Not Recovered/Not Resolved]
  - Oropharyngeal pain [Recovering/Resolving]
  - Fatigue [Recovered/Resolved]
  - Haemoptysis [Unknown]
  - Therapeutic response unexpected [Unknown]
  - Therapy interrupted [Unknown]

NARRATIVE: CASE EVENT DATE: 20221201
